FAERS Safety Report 9200249 (Version 3)
Quarter: 2013Q2

REPORT INFORMATION
  Report Type: Report from Study
  Country: US (occurrence: US)
  Receive Date: 20130329
  Receipt Date: 20130607
  Transmission Date: 20140414
  Serious: Yes (Hospitalization)
  Sender: FDA-Public Use
  Company Number: US-PFIZER INC-2013094901

PATIENT
  Age: 60 Year
  Sex: Male
  Weight: 72 kg

DRUGS (3)
  1. ZIPRASIDONE HCL [Suspect]
     Indication: DEPRESSION
     Dosage: 60 MG, 2X/DAY
     Route: 048
     Dates: start: 20120518, end: 20121216
  2. LEXAPRO [Suspect]
     Dosage: UNK
  3. TRAZODONE [Concomitant]
     Indication: INSOMNIA
     Dosage: 150 MG, UNK
     Route: 048
     Dates: start: 20120525

REACTIONS (1)
  - Suicidal ideation [Recovered/Resolved]
